FAERS Safety Report 17709047 (Version 1)
Quarter: 2020Q2

REPORT INFORMATION
  Report Type: Spontaneous
  Country: US (occurrence: US)
  Receive Date: 20200426
  Receipt Date: 20200426
  Transmission Date: 20200714
  Serious: No
  Sender: FDA-Public Use
  Company Number: US-GALDERMA-US2020009692

PATIENT
  Age: 29 Year
  Sex: Male

DRUGS (10)
  1. PROACTIV MD BALANCING TONER [Concomitant]
     Active Substance: COSMETICS
     Indication: SEBORRHOEA
  2. PROACTIV MD DEEP CLEANSING FACE WASH [Concomitant]
     Active Substance: COSMETICS
     Indication: SEBORRHOEA
  3. PROACTIV MD ADAPALENE ACNE TREATMENT [Suspect]
     Active Substance: ADAPALENE
     Indication: SEBORRHOEA
  4. PROACTIV MD ADAPALENE ACNE TREATMENT [Suspect]
     Active Substance: ADAPALENE
     Indication: DRY SKIN
     Dosage: 0.1%
     Route: 061
     Dates: start: 20200123, end: 202002
  5. PROACTIV MD DAILY OIL CONTROL SPF 30 [Suspect]
     Active Substance: AVOBENZONE\OCTISALATE\OCTOCRYLENE
     Indication: SEBORRHOEA
  6. PROACTIV EYE BRIGHTENING SERUM [Concomitant]
     Active Substance: COSMETICS
     Indication: DRY SKIN
     Route: 061
     Dates: start: 20200123, end: 202002
  7. PROACTIV MD BALANCING TONER [Concomitant]
     Active Substance: COSMETICS
     Indication: DRY SKIN
     Route: 061
     Dates: start: 20200123, end: 202002
  8. PROACTIV MD DAILY OIL CONTROL SPF 30 [Suspect]
     Active Substance: AVOBENZONE\OCTISALATE\OCTOCRYLENE
     Indication: DRY SKIN
     Route: 061
     Dates: start: 20200123, end: 202002
  9. PROACTIV MD DEEP CLEANSING FACE WASH [Concomitant]
     Active Substance: COSMETICS
     Indication: DRY SKIN
     Route: 061
     Dates: start: 20200123, end: 202002
  10. PROACTIV EYE BRIGHTENING SERUM [Concomitant]
     Active Substance: COSMETICS
     Indication: SEBORRHOEA

REACTIONS (3)
  - Product use in unapproved indication [Recovered/Resolved]
  - Dry skin [Recovering/Resolving]
  - Acne [Recovering/Resolving]

NARRATIVE: CASE EVENT DATE: 20200123
